FAERS Safety Report 4708577-3 (Version None)
Quarter: 2005Q3

REPORT INFORMATION
  Report Type: 
  Country: None (occurrence: None)
  Receive Date: 20050706
  Receipt Date: 20050625
  Transmission Date: 20060218
  Serious: Yes (Hospitalization, Other)
  Sender: FDA-Public Use
  Company Number: 2005093459

PATIENT
  Age: 64 Year
  Sex: Male
  Weight: 101.1521 kg

DRUGS (11)
  1. ZOLOFT [Suspect]
     Indication: ILL-DEFINED DISORDER
     Dates: start: 20040101
  2. VYTORIN [Suspect]
     Indication: BLOOD CHOLESTEROL INCREASED
     Dosage: ORAL
     Route: 048
     Dates: end: 20050501
  3. HUMALOG [Concomitant]
  4. DILANTIN [Concomitant]
  5. PHENOBARBITAL TAB [Concomitant]
  6. ACCUPRIL [Concomitant]
  7. AVANDIA [Concomitant]
  8. NEURONTIN [Concomitant]
  9. NEXIUM [Concomitant]
  10. WARFARIN SODIUM [Concomitant]
  11. CELEBREX [Concomitant]

REACTIONS (4)
  - BLOOD CHOLESTEROL INCREASED [None]
  - CHEST PAIN [None]
  - MUSCLE INJURY [None]
  - MUSCLE SPASMS [None]
